FAERS Safety Report 7807025-4 (Version None)
Quarter: 2011Q4

REPORT INFORMATION
  Report Type: 
  Country: None (occurrence: None)
  Receive Date: 20111011
  Receipt Date: 20111004
  Transmission Date: 20120403
  Serious: Yes (Hospitalization)
  Sender: FDA-Public Use
  Company Number: PHHY2011TR89156

PATIENT
  Age: 31 Year
  Sex: Male

DRUGS (1)
  1. AMOXICILLIN AND CLAVULANATE POTASSIUM [Suspect]
     Indication: INFLUENZA
     Route: 065

REACTIONS (6)
  - ANGINA PECTORIS [None]
  - EOSINOPHILIA [None]
  - MYOCARDIAL INFARCTION [None]
  - CHEST PAIN [None]
  - LEUKOCYTOSIS [None]
  - KOUNIS SYNDROME [None]
